FAERS Safety Report 9646265 (Version 3)
Quarter: 2014Q2

REPORT INFORMATION
  Report Type: Spontaneous
  Country: US (occurrence: US)
  Receive Date: 20131025
  Receipt Date: 20140514
  Transmission Date: 20141212
  Serious: Yes (Death, Other)
  Sender: FDA-Public Use
  Company Number: US-NAPPMUNDI-USA-2013-0105348

PATIENT
  Age: 24 Year
  Sex: Female
  Weight: 101.59 kg

DRUGS (17)
  1. DILAUDID TABLET [Suspect]
     Indication: ABDOMINAL PAIN UPPER
     Dosage: 4 MG, Q3- 4H
     Route: 048
     Dates: start: 20110225, end: 20120227
  2. OXYCODONE HCL CR TABLETS (SIMILAR TO NDA 22-272) [Suspect]
     Indication: PRODUCT USED FOR UNKNOWN INDICATION
     Dosage: UNKNOWN
     Route: 065
  3. KLONOPIN [Suspect]
     Indication: ANXIETY
     Dosage: 2 MG, UNK
     Route: 048
     Dates: start: 20110328
  4. KLONOPIN [Suspect]
     Dosage: 2 MG, TID PRN
     Route: 048
     Dates: start: 20110225
  5. KLONOPIN [Suspect]
     Dosage: 1 UNK, UNK
     Route: 048
     Dates: start: 20110531
  6. PHENERGAN                          /00033001/ [Suspect]
     Indication: PRODUCT USED FOR UNKNOWN INDICATION
     Dosage: 25 MG, UNK
     Route: 048
     Dates: start: 20110225, end: 20120227
  7. PHENERGAN                          /00033001/ [Suspect]
     Dosage: UNK SUPP., UNK
     Route: 054
  8. XANAX [Suspect]
     Indication: PRODUCT USED FOR UNKNOWN INDICATION
     Dosage: UNKNOWN
     Route: 065
  9. DIAZEPAM [Suspect]
     Indication: PRODUCT USED FOR UNKNOWN INDICATION
     Dosage: UNK, UNK
     Route: 065
  10. ATIVAN [Suspect]
     Indication: PRODUCT USED FOR UNKNOWN INDICATION
  11. ALCOHOL [Suspect]
     Indication: SUBSTANCE ABUSE
     Route: 048
  12. VICODIN [Suspect]
     Indication: PRODUCT USED FOR UNKNOWN INDICATION
  13. ABILIFY [Concomitant]
     Indication: PRODUCT USED FOR UNKNOWN INDICATION
  14. CYMBALTA [Concomitant]
     Indication: PRODUCT USED FOR UNKNOWN INDICATION
     Dosage: 60 MG, UNK
     Route: 048
     Dates: start: 20110225
  15. FENTANYL [Concomitant]
     Indication: PRODUCT USED FOR UNKNOWN INDICATION
     Dosage: 25 MCG/HR, WEEKLY
     Route: 062
     Dates: start: 20110915
  16. TORADOL [Concomitant]
     Indication: PRODUCT USED FOR UNKNOWN INDICATION
     Dosage: UNK
     Route: 051
     Dates: start: 20110915
  17. BOTOX [Concomitant]
     Indication: PRODUCT USED FOR UNKNOWN INDICATION
     Route: 051

REACTIONS (13)
  - Overdose [Fatal]
  - Drug dependence [Unknown]
  - Substance abuse [Unknown]
  - Respiratory failure [Unknown]
  - Hallucination [Unknown]
  - Chest discomfort [Unknown]
  - Blood pressure increased [Unknown]
  - Vomiting [Unknown]
  - Drug intolerance [Unknown]
  - Pain [Unknown]
  - Gastritis [Unknown]
  - Gastrooesophageal reflux disease [Unknown]
  - Nausea [Unknown]
